FAERS Safety Report 21759449 (Version 2)
Quarter: 2023Q1

REPORT INFORMATION
  Report Type: Spontaneous
  Country: US (occurrence: US)
  Receive Date: 20221221
  Receipt Date: 20230109
  Transmission Date: 20230417
  Serious: Yes (Other)
  Sender: FDA-Public Use
  Company Number: US-BRISTOL-MYERS SQUIBB COMPANY-2022-155814

PATIENT
  Age: 82 Year
  Sex: Male
  Weight: 75.5 kg

DRUGS (29)
  1. REVLIMID [Suspect]
     Active Substance: LENALIDOMIDE
     Indication: Plasma cell myeloma
     Dosage: FREQ: ONCE DAILY FOR 21 DAYS ON AND 7 DAY
     Route: 048
     Dates: start: 202208
  2. REVLIMID [Suspect]
     Active Substance: LENALIDOMIDE
     Dosage: TAKE 1 CAPSULE BY MOUTH DAILY DAYS 1-21 EVERY 4 WEEKS
     Route: 048
     Dates: start: 20220727
  3. DEXAMETHASONE [Suspect]
     Active Substance: DEXAMETHASONE
     Indication: Product used for unknown indication
     Dosage: 20 MG PO QD EVERY OTHER WEEK
     Route: 048
  4. DECADRON [Concomitant]
     Active Substance: DEXAMETHASONE
     Dosage: TAKE 4 MG BY MOUTH DAILY WITH BREAKFAST, ONLY TAKE 5 TABS ON THE OF DARA INJECTION
     Route: 048
  5. ZOVIRAX [Concomitant]
     Active Substance: ACYCLOVIR
     Dosage: TAKE 400 MG BY MOUTH IN THE MORNING AND 400 MG BEFORE BEDTIME
     Route: 048
  6. PROVENTIL HFA [SALBUTAMOL] [Concomitant]
  7. VENTOLIN HFA [Concomitant]
     Active Substance: ALBUTEROL SULFATE
     Indication: Wheezing
     Dosage: INHALE 2 PUFFS EVERY 6 (SIX) HOURS AS NEEDED FOR WHEEZING
     Route: 055
     Dates: start: 20181010
  8. UROXATRAL [Concomitant]
     Active Substance: ALFUZOSIN HYDROCHLORIDE
     Dosage: TAKE 10 MG BY MOUTH IN THE MORNING AND 10 MG BEFORE BEDTIME
     Route: 048
  9. BUSPAR [Concomitant]
     Active Substance: BUSPIRONE HYDROCHLORIDE
     Dates: start: 20130930
  10. OSCAL [Concomitant]
     Active Substance: CALCIUM CARBONATE
     Route: 048
  11. APPLE CIDER VINEGAR [MALUS SPP. VINEGAR EXTRACT] [Concomitant]
     Dosage: TAKE BY MOUTH. ONCE DAY
     Route: 048
  12. CYANOCOBALAMIN [Concomitant]
     Active Substance: CYANOCOBALAMIN
     Dosage: TAKE 500 MCG BY MOUTH DAILY
     Route: 048
  13. PEPCID [Concomitant]
     Active Substance: FAMOTIDINE
     Dosage: TAKE 20 MG BY MOUTH IN THE MORNING
     Route: 048
  14. FERROUS SULFATE [Concomitant]
     Active Substance: FERROUS SULFATE
     Dosage: TAKE 325 MG BY MOUTH DAILY
     Route: 048
  15. ALLEGRA [Concomitant]
     Active Substance: FEXOFENADINE HYDROCHLORIDE
     Dosage: TAKE 60 MG BY MOUTH 2 (TWO) TIMES A DAY
     Route: 048
  16. FLONASE [Concomitant]
     Active Substance: FLUTICASONE PROPIONATE
     Dosage: ADMINISTER 1 SPRAY INTO EACH NOSTRIL DAILY
     Route: 045
     Dates: start: 20130930
  17. FLOVENT HFA [Concomitant]
     Active Substance: FLUTICASONE PROPIONATE
     Dosage: INHALE 2 PUFFS 2 (TWO) TIMES A DAY
     Route: 055
     Dates: start: 20180205
  18. GLUCOSAMINE/CHONDROITIN [CHONDROITIN SULFATE;GLUCOSAMINE] [Concomitant]
     Dosage: TAKE 1 TABLET BY MOUTH 3 (THREE) TIMES A DAY?500-400 MG TABLET
     Route: 048
  19. ATROVENT [Concomitant]
     Active Substance: IPRATROPIUM BROMIDE
     Indication: Rhinitis
     Dosage: ADMINISTER 1 SPRAY INTO EACH NOSTRIL DAILY AS NEEDED FOR RHINITIS
     Route: 045
  20. PREVACID [Concomitant]
     Active Substance: LANSOPRAZOLE
     Dosage: TAKE 1 CAPSULE BY MOUTH EVERY DAY
     Route: 048
     Dates: start: 20210907
  21. SYNTHROID [Concomitant]
     Active Substance: LEVOTHYROXINE SODIUM
     Dosage: TAKE 1 TABLET BY MOUTH EVERY DAY
     Route: 048
     Dates: start: 20220802
  22. MYRBETRIQ [Concomitant]
     Active Substance: MIRABEGRON
     Dosage: TAKE 1 TABLET BY MOUTH EVERYDAY AT BEDTIME
     Route: 048
     Dates: start: 20220128
  23. FISH OIL [Concomitant]
     Active Substance: FISH OIL
     Dosage: OMEGA 3-DHA-EPA-FI5H OIL 183.3 MG-75 MG -91.6 MG-306 MG CAPSULE ?TAKE 2 CAPSULES BY MOUTH DAILY
     Route: 048
     Dates: start: 20160811
  24. ZOFRAN [Concomitant]
     Active Substance: ONDANSETRON HYDROCHLORIDE
     Indication: Nausea
     Dosage: TAKE 1 TABLET (8 MG TOTAL) BY MOUTH EVERY 8 (EIGHT) HOURS AS NEEDED FOR NAUSEA OR VOMITING
     Route: 048
     Dates: start: 20220727
  25. ZOFRAN [Concomitant]
     Active Substance: ONDANSETRON HYDROCHLORIDE
     Indication: Vomiting
  26. MYSOLINE [Concomitant]
     Active Substance: PRIMIDONE
     Dosage: TAKE 0.5 TABLETS (25 MG TOTAL) BY MOUTH 2 (TWO) TIMES A DAY.?PATIENT TAKING DIFFERENTLY: TAKE 50 MG
     Route: 048
     Dates: start: 20210525
  27. XARELTO [Concomitant]
     Active Substance: RIVAROXABAN
  28. FLOMAX [Concomitant]
     Active Substance: TAMSULOSIN HYDROCHLORIDE
     Dosage: TAKE 1 CAPSULE BY MOUTH EVERY DAY AT NIGHT
     Route: 048
     Dates: start: 20191113
  29. DESYREL [Concomitant]
     Active Substance: TRAZODONE HYDROCHLORIDE
     Dosage: TAKE 50 MG BY MOUTH NIGHTLY
     Route: 048
     Dates: start: 20150810

REACTIONS (6)
  - Rash [Unknown]
  - Fatigue [Unknown]
  - Deep vein thrombosis [Unknown]
  - Neuropathy peripheral [Unknown]
  - Hepatic lesion [Unknown]
  - Benign prostatic hyperplasia [Unknown]
